FAERS Safety Report 9913903 (Version 1)
Quarter: 2014Q1

REPORT INFORMATION
  Report Type: Spontaneous
  Country: US (occurrence: None)
  Receive Date: 20140219
  Receipt Date: 20140219
  Transmission Date: 20141002
  Serious: No
  Sender: FDA-Public Use
  Company Number: None

PATIENT
  Age: 25 Year
  Sex: Female
  Weight: 90.72 kg

DRUGS (1)
  1. NUVARING [Suspect]
     Indication: CONTRACEPTION
     Route: 067
     Dates: start: 20140211, end: 20140218

REACTIONS (7)
  - Mood swings [None]
  - Depression [None]
  - Nausea [None]
  - Constipation [None]
  - Insomnia [None]
  - Asthenia [None]
  - Suicidal ideation [None]
